FAERS Safety Report 14707029 (Version 1)
Quarter: 2018Q2

REPORT INFORMATION
  Report Type: Report from Study
  Country: US (occurrence: US)
  Receive Date: 20180403
  Receipt Date: 20180403
  Transmission Date: 20180711
  Serious: Yes (Hospitalization, Disabling)
  Sender: FDA-Public Use
  Company Number: PHEH2018US011327

PATIENT
  Age: 9 Year
  Sex: Female

DRUGS (1)
  1. KYMRIAH [Suspect]
     Active Substance: TISAGENLECLEUCEL
     Indication: ACUTE LYMPHOCYTIC LEUKAEMIA
     Dosage: UNK UNK, ONCE/SINGLE
     Route: 042
     Dates: start: 20130416, end: 20130417

REACTIONS (5)
  - Cytokine storm [Recovered/Resolved]
  - Decreased appetite [Unknown]
  - Headache [Unknown]
  - Memory impairment [Not Recovered/Not Resolved]
  - Pyrexia [Unknown]

NARRATIVE: CASE EVENT DATE: 20130417
